FAERS Safety Report 10277515 (Version 2)
Quarter: 2014Q3

REPORT INFORMATION
  Report Type: Spontaneous
  Country: DE (occurrence: DE)
  Receive Date: 20140703
  Receipt Date: 20140811
  Transmission Date: 20150326
  Serious: Yes (Life-Threatening, Hospitalization, Other)
  Sender: FDA-Public Use
  Company Number: DE-PFIZER INC-2014179123

PATIENT
  Age: 70 Year
  Sex: Male
  Weight: 85 kg

DRUGS (2)
  1. NEURONTIN [Suspect]
     Active Substance: GABAPENTIN
     Indication: POLYNEUROPATHY
  2. NEURONTIN [Suspect]
     Active Substance: GABAPENTIN
     Indication: DYSAESTHESIA
     Dosage: 300 MG, 3X/DAY
     Route: 048
     Dates: start: 201211, end: 201406

REACTIONS (6)
  - Pain [Unknown]
  - Electrocardiogram QT prolonged [Unknown]
  - Cardiac fibrillation [Recovered/Resolved]
  - Drug ineffective [Recovered/Resolved]
  - Electrocardiogram QT prolonged [Recovered/Resolved]
  - Paraesthesia [Unknown]

NARRATIVE: CASE EVENT DATE: 201406
